FAERS Safety Report 8255055-3 (Version None)
Quarter: 2012Q2

REPORT INFORMATION
  Report Type: 
  Country: None (occurrence: None)
  Receive Date: 20120403
  Receipt Date: 20120325
  Transmission Date: 20120825
  Serious: Yes (Hospitalization)
  Sender: FDA-Public Use
  Company Number: GR-SANOFI-AVENTIS-2012SA020983

PATIENT
  Age: 34 Year
  Sex: Female

DRUGS (4)
  1. SOLOSTAR [Suspect]
  2. LANTUS [Suspect]
     Dosage: DOSE:10 UNIT(S)
     Route: 065
  3. LANTUS [Suspect]
     Dosage: DOSE:240 UNIT(S)
     Route: 065
  4. SOLOSTAR [Suspect]
     Indication: DEVICE THERAPY

REACTIONS (4)
  - INTENTIONAL OVERDOSE [None]
  - SUICIDE ATTEMPT [None]
  - HYPOGLYCAEMIA [None]
  - TREMOR [None]
